FAERS Safety Report 9407567 (Version 1)
Quarter: 2013Q3

REPORT INFORMATION
  Report Type: Report from Study
  Country: CH (occurrence: CH)
  Receive Date: 20130718
  Receipt Date: 20130718
  Transmission Date: 20140515
  Serious: Yes (Life-Threatening)
  Sender: FDA-Public Use
  Company Number: CH-MPIJNJ-2013-05482

PATIENT
  Sex: 0

DRUGS (10)
  1. VELCADE [Suspect]
     Indication: PLASMA CELL MYELOMA
     Dosage: 2.1 MG, UNK
     Route: 042
     Dates: start: 20130508, end: 20130518
  2. CYCLOPHOSPHAMIDE [Suspect]
     Indication: PLASMA CELL MYELOMA
     Dosage: 800 MG, UNK
     Route: 042
     Dates: start: 20130508, end: 20130515
  3. DEXAMETHASONE [Suspect]
     Indication: PLASMA CELL MYELOMA
     Dosage: 40 MG, UNK
     Route: 048
     Dates: start: 20130508, end: 20130519
  4. METOCLOPRAMIDE [Concomitant]
     Dosage: 10 MG, PRN
  5. BACTRIM [Concomitant]
     Dosage: UNK UNK, 3/WEEK
  6. PANTOZOL                           /01263202/ [Concomitant]
     Dosage: 40 MG, QD
  7. VITAMIN E                          /00110501/ [Concomitant]
     Dosage: UNK
  8. CALCIUM D3                         /00944201/ [Concomitant]
     Dosage: UNK, QD
  9. ACIDUM FOLICUM [Concomitant]
     Dosage: 5 MG, QD
  10. VAGIFEM [Concomitant]
     Dosage: 10 MG, 1/WEEK

REACTIONS (1)
  - Platelet count decreased [Recovered/Resolved]
